FAERS Safety Report 13532493 (Version 2)
Quarter: 2017Q2

REPORT INFORMATION
  Report Type: Spontaneous
  Country: US (occurrence: US)
  Receive Date: 20170510
  Receipt Date: 20170623
  Transmission Date: 20170830
  Serious: Yes (Other)
  Sender: FDA-Public Use
  Company Number: US-JAZZ-2017-US-005815

PATIENT
  Age: 29 Year
  Sex: Female

DRUGS (1)
  1. XYREM [Suspect]
     Active Substance: SODIUM OXYBATE
     Indication: PRODUCT USED FOR UNKNOWN INDICATION
     Dosage: UNKNOWN DOSE
     Route: 048

REACTIONS (10)
  - Mental status changes [Recovering/Resolving]
  - Irritability [Recovered/Resolved]
  - Abnormal behaviour [Recovering/Resolving]
  - Coma [Recovered/Resolved]
  - Confusional state [Recovering/Resolving]
  - Anxiety [Recovering/Resolving]
  - Hypertension [Recovered/Resolved]
  - Tachycardia [Recovered/Resolved]
  - Intentional product use issue [Unknown]
  - Agitation [Recovered/Resolved]
